FAERS Safety Report 9293888 (Version 1)
Quarter: 2013Q1

REPORT INFORMATION
  Report Type: Spontaneous
  Country: US (occurrence: None)
  Receive Date: 20121217
  Receipt Date: 20121217
  Transmission Date: 20140127
  Serious: Yes (Hospitalization)
  Sender: FDA-Public Use
  Company Number: 1000029906

PATIENT
  Age: 85 Year
  Sex: Female

DRUGS (10)
  1. NAMENDA [Suspect]
     Indication: DEMENTIA
     Route: 048
     Dates: start: 201202
  2. FUROSEMIDE (FUROSEMIDE)(FUROSEMIDE) [Concomitant]
  3. LEVOTHYROXINE(LEVOTHYROXINE SODIUM) (LEVOTHYROXINE SODIUM)(LEVOTHYROXINE SODIUM) [Concomitant]
  4. LORAZEPAM(LORAZEPAM)(LORAZEPAM) [Concomitant]
  5. PREDNISONE(PREDNISONE)(PREDNISONE) [Concomitant]
  6. CELEXA(CITALOPRAM HYDROBROMIDE)(CITALOPRAM HYDROBROMIDE) [Concomitant]
  7. PRILOSEC (OMEPRAZOLE)(OMEPRAZOLE) [Concomitant]
  8. TRAZODONE(TRAZODONE)(TRAZODONE) [Concomitant]
  9. SPIRIVA(TIOTROPIUM BROMIDE)(TIOTROPIUM BROMIDE) [Concomitant]
  10. ADVAIR (FLUCTICASONE) (FLUTICASONE) [Concomitant]

REACTIONS (5)
  - Pneumonia [None]
  - Confusional state [None]
  - Dizziness [None]
  - Headache [None]
  - Anxiety [None]
